FAERS Safety Report 18729794 (Version 8)
Quarter: 2022Q3

REPORT INFORMATION
  Report Type: Report from Study
  Country: US (occurrence: US)
  Receive Date: 20210112
  Receipt Date: 20220902
  Transmission Date: 20221027
  Serious: Yes (Hospitalization)
  Sender: FDA-Public Use
  Company Number: NVSC2021US003811

PATIENT
  Age: 53 Year
  Sex: Female
  Weight: 74.8 kg

DRUGS (5)
  1. KISQALI [Suspect]
     Active Substance: RIBOCICLIB
     Indication: HER2 negative breast cancer
     Dosage: 400 MG, QD
     Route: 048
     Dates: start: 20190607, end: 20211204
  2. FEMARA [Suspect]
     Active Substance: LETROZOLE
     Indication: HER2 negative breast cancer
     Dosage: 2.5 MG
     Route: 048
     Dates: start: 20190607, end: 20190711
  3. FEMARA [Suspect]
     Active Substance: LETROZOLE
     Dosage: 2.5 MG
     Route: 048
     Dates: start: 20190712, end: 20190718
  4. FEMARA [Suspect]
     Active Substance: LETROZOLE
     Dosage: 2.5 MG
     Route: 048
     Dates: start: 20190719, end: 20190725
  5. GOSERELIN [Suspect]
     Active Substance: GOSERELIN
     Indication: HER2 negative breast cancer
     Dosage: 3.6 MG
     Route: 058
     Dates: start: 20190706

REACTIONS (2)
  - Device related infection [Recovered/Resolved]
  - Sepsis [Recovered/Resolved]

NARRATIVE: CASE EVENT DATE: 20210102
